FAERS Safety Report 5735498-X (Version None)
Quarter: 2008Q2

REPORT INFORMATION
  Report Type: 
  Country: None (occurrence: None)
  Receive Date: 20080508
  Receipt Date: 20080503
  Transmission Date: 20081010
  Serious: Yes (Hospitalization)
  Sender: FDA-Public Use
  Company Number: 2008SP008363

PATIENT
  Age: 47 Year
  Sex: Female

DRUGS (2)
  1. PEG-INTRON [Suspect]
     Indication: HEPATITIS C
     Dosage: ;SC
     Route: 058
     Dates: start: 20071024
  2. RIBAVIRIN [Suspect]
     Indication: HEPATITIS C
     Dosage: ;PO
     Route: 048
     Dates: start: 20071024

REACTIONS (9)
  - ABSCESS [None]
  - ASTHENIA [None]
  - CHILLS [None]
  - CONTUSION [None]
  - DEHYDRATION [None]
  - LOCAL SWELLING [None]
  - SKIN DISORDER [None]
  - VEIN DISORDER [None]
  - VOMITING [None]
